FAERS Safety Report 15456188 (Version 2)
Quarter: 2019Q3

REPORT INFORMATION
  Report Type: Spontaneous
  Country: US (occurrence: US)
  Receive Date: 20181002
  Receipt Date: 20190905
  Transmission Date: 20191004
  Serious: Yes (Other)
  Sender: FDA-Public Use
  Company Number: US-SA-2018SA135273

PATIENT
  Age: 50 Year
  Sex: Female
  Weight: 83 kg

DRUGS (4)
  1. ADRIAMYCIN [Concomitant]
     Active Substance: DOXORUBICIN HYDROCHLORIDE
     Indication: BREAST CANCER
  2. NEOSAR [Concomitant]
     Active Substance: CYCLOPHOSPHAMIDE
     Indication: BREAST CANCER
  3. TAXOTERE [Suspect]
     Active Substance: DOCETAXEL
     Dosage: INITIAL THEN EVERY 2 WEEKS
     Route: 042
     Dates: start: 20050707, end: 20050707
  4. TAXOTERE [Suspect]
     Active Substance: DOCETAXEL
     Indication: BREAST CANCER FEMALE
     Dosage: INITIAL THEN EVERY 2 WEEKS
     Route: 042
     Dates: start: 20050519, end: 20050519

REACTIONS (2)
  - Alopecia [Not Recovered/Not Resolved]
  - Psychological trauma [Unknown]

NARRATIVE: CASE EVENT DATE: 200507
